FAERS Safety Report 14208537 (Version 1)
Quarter: 2017Q4

REPORT INFORMATION
  Report Type: Spontaneous
  Country: US (occurrence: US)
  Receive Date: 20171121
  Receipt Date: 20171121
  Transmission Date: 20180321
  Serious: Yes (Hospitalization)
  Sender: FDA-Public Use
  Company Number: US-SIGMAPHARM LABORATORIES, LLC-2017SIG00067

PATIENT
  Age: 68 Year
  Sex: Male

DRUGS (2)
  1. ACITRETIN. [Suspect]
     Active Substance: ACITRETIN
     Indication: ICHTHYOSIS
     Dosage: 25 MG, 3X/WEEK
     Route: 048
     Dates: start: 201710, end: 201710
  2. PROGRAF [Concomitant]
     Active Substance: TACROLIMUS\TACROLIMUS ANHYDROUS

REACTIONS (2)
  - Hepatic enzyme abnormal [Unknown]
  - Renal failure [Unknown]

NARRATIVE: CASE EVENT DATE: 201710
